FAERS Safety Report 10242199 (Version 1)
Quarter: 2014Q2

REPORT INFORMATION
  Report Type: Spontaneous
  Country: GR (occurrence: GR)
  Receive Date: 20140617
  Receipt Date: 20140617
  Transmission Date: 20141212
  Serious: Yes (Other)
  Sender: FDA-Public Use
  Company Number: GR-ABBVIE-14P-066-1248089-00

PATIENT
  Age: 42 Year
  Sex: Male

DRUGS (8)
  1. DEPAKINE [Suspect]
     Indication: DEPRESSION
  2. DEPAKINE [Suspect]
     Indication: BIPOLAR DISORDER
  3. SOLIAN [Suspect]
     Indication: DEPRESSION
  4. SOLIAN [Suspect]
     Indication: BIPOLAR DISORDER
  5. ZYPREXA [Suspect]
     Indication: DEPRESSION
  6. ZYPREXA [Suspect]
     Indication: BIPOLAR DISORDER
  7. SEROQUEL [Concomitant]
     Indication: PRODUCT USED FOR UNKNOWN INDICATION
  8. LADOSE [Concomitant]
     Indication: PRODUCT USED FOR UNKNOWN INDICATION

REACTIONS (1)
  - Weight increased [Unknown]
